FAERS Safety Report 11864730 (Version 1)
Quarter: 2015Q4

REPORT INFORMATION
  Report Type: Spontaneous
  Country: US (occurrence: US)
  Receive Date: 20151223
  Receipt Date: 20151223
  Transmission Date: 20160305
  Serious: Yes (Other)
  Sender: FDA-Public Use
  Company Number: US-HOSPIRA-3121922

PATIENT
  Age: 53 Year
  Sex: Male

DRUGS (4)
  1. PROPOFOL. [Suspect]
     Active Substance: PROPOFOL
     Indication: SEDATIVE THERAPY
     Dosage: MAX RATE: 15 MCG/KG/MIN
     Route: 041
  2. LORAZEPAM. [Suspect]
     Active Substance: LORAZEPAM
     Indication: SEDATIVE THERAPY
     Dosage: MAX RATE: 10 MG/HR
     Route: 041
  3. MORPHINE SULPHATE [Suspect]
     Active Substance: MORPHINE SULFATE
     Indication: ANALGESIC THERAPY
     Dosage: MAX RATE: 6 MG/HR
     Route: 041
  4. HYDROMORPHONE HYDROCHLORIDE. [Suspect]
     Active Substance: HYDROMORPHONE HYDROCHLORIDE
     Indication: ANALGESIC THERAPY
     Dosage: MAX RATE: 8 MG/HR
     Route: 041

REACTIONS (5)
  - Agitation [Unknown]
  - Pancreatitis [Unknown]
  - Acute kidney injury [Unknown]
  - Oxygen saturation decreased [Unknown]
  - Condition aggravated [Unknown]
